FAERS Safety Report 17290978 (Version 1)
Quarter: 2020Q1

REPORT INFORMATION
  Report Type: Spontaneous
  Country: CN (occurrence: CN)
  Receive Date: 20200121
  Receipt Date: 20200121
  Transmission Date: 20200409
  Serious: Yes (Other)
  Sender: FDA-Public Use
  Company Number: CN-BAYER-2019-221112

PATIENT
  Age: 56 Year
  Sex: Male

DRUGS (1)
  1. STIVARGA [Suspect]
     Active Substance: REGORAFENIB
     Dosage: 160 MG, QD
     Route: 048

REACTIONS (5)
  - Decreased appetite [Recovering/Resolving]
  - Blister [Recovering/Resolving]
  - Blood pressure increased [Recovering/Resolving]
  - Skin fissures [Recovering/Resolving]
  - Nausea [Recovering/Resolving]
